FAERS Safety Report 22009000 (Version 2)
Quarter: 2024Q1

REPORT INFORMATION
  Report Type: Spontaneous
  Country: JP (occurrence: JP)
  Receive Date: 20230220
  Receipt Date: 20240122
  Transmission Date: 20240410
  Serious: Yes (Other)
  Sender: FDA-Public Use
  Company Number: JP-MSD-M2023-06189

PATIENT
  Age: 5 Decade
  Sex: Female

DRUGS (3)
  1. KEYTRUDA [Suspect]
     Active Substance: PEMBROLIZUMAB
     Indication: Triple negative breast cancer
     Dosage: 200 MILLIGRAM, Q3W
     Route: 041
     Dates: start: 202301
  2. CARBOPLATIN [Concomitant]
     Active Substance: CARBOPLATIN
     Dosage: UNK
     Route: 065
     Dates: start: 202301
  3. PACLITAXEL [Concomitant]
     Active Substance: PACLITAXEL
     Dosage: UNK
     Route: 065
     Dates: start: 202301

REACTIONS (1)
  - Hypothalamo-pituitary disorder [Unknown]

NARRATIVE: CASE EVENT DATE: 20230201
